FAERS Safety Report 11983812 (Version 1)
Quarter: 2016Q1

REPORT INFORMATION
  Report Type: Spontaneous
  Country: FR (occurrence: FR)
  Receive Date: 20160201
  Receipt Date: 20160201
  Transmission Date: 20160526
  Serious: Yes (Hospitalization)
  Sender: FDA-Public Use
  Company Number: FR-SA-2016SA015041

PATIENT
  Age: 48 Year
  Sex: Male

DRUGS (8)
  1. CYAMEMAZINE [Suspect]
     Active Substance: CYAMEMAZINE
     Indication: DELIRIUM
     Dosage: FORM DROPS
     Route: 048
     Dates: start: 20160106, end: 20160107
  2. CYAMEMAZINE [Suspect]
     Active Substance: CYAMEMAZINE
     Indication: DELIRIUM
     Dosage: FORM UNKNOWN
     Route: 048
     Dates: start: 20160108
  3. OLANZAPINE. [Suspect]
     Active Substance: OLANZAPINE
     Indication: DELIRIUM
     Route: 048
     Dates: start: 20160109
  4. OLANZAPINE. [Suspect]
     Active Substance: OLANZAPINE
     Indication: DELIRIUM
     Route: 048
     Dates: start: 20160106, end: 20160108
  5. ESCITALOPRAM OXALATE. [Suspect]
     Active Substance: ESCITALOPRAM OXALATE
     Indication: DELIRIUM
     Dosage: FILM-COATED DIVISIBLE TABLETS
     Route: 048
     Dates: start: 20160106, end: 20160108
  6. ZOLPIDEM TARTRATE. [Suspect]
     Active Substance: ZOLPIDEM TARTRATE
     Indication: DELIRIUM
     Route: 048
     Dates: start: 20160106
  7. TEMESTA [Suspect]
     Active Substance: LORAZEPAM
     Indication: DELIRIUM
     Dosage: FORM DIVISABLE TABLET
     Route: 048
     Dates: start: 20160111
  8. TEMESTA [Suspect]
     Active Substance: LORAZEPAM
     Indication: DELIRIUM
     Dosage: FORM DIVISABLE TABLET
     Route: 048
     Dates: start: 20160108, end: 20160110

REACTIONS (1)
  - Electrocardiogram QT prolonged [Recovering/Resolving]

NARRATIVE: CASE EVENT DATE: 20160108
